FAERS Safety Report 11412469 (Version 1)
Quarter: 2015Q3

REPORT INFORMATION
  Report Type: Spontaneous
  Country: TR (occurrence: TR)
  Receive Date: 20150824
  Receipt Date: 20150824
  Transmission Date: 20151125
  Serious: Yes (Life-Threatening, Other)
  Sender: FDA-Public Use
  Company Number: TR-ASTRAZENECA-2015BM00019

PATIENT
  Age: 45 Year
  Sex: Male
  Weight: 135 kg

DRUGS (1)
  1. BYETTA [Suspect]
     Active Substance: EXENATIDE
     Indication: DIABETES MELLITUS
     Route: 065
     Dates: start: 20141220, end: 20141227

REACTIONS (1)
  - Ischaemic stroke [Unknown]
